FAERS Safety Report 14022150 (Version 1)
Quarter: 2017Q3

REPORT INFORMATION
  Report Type: Spontaneous
  Country: US (occurrence: US)
  Receive Date: 20170928
  Receipt Date: 20170928
  Transmission Date: 20171128
  Serious: No
  Sender: FDA-Public Use
  Company Number: US-ACTELION-A-US2017-160153

PATIENT
  Age: 22 Year
  Sex: Female

DRUGS (3)
  1. MULTIVITAMIN [Concomitant]
     Active Substance: VITAMINS
     Dosage: UNK, QD
     Route: 048
     Dates: start: 20140324
  2. ZAVESCA [Suspect]
     Active Substance: MIGLUSTAT
     Indication: GAUCHER^S DISEASE
     Dosage: 200 MCG, TID
     Route: 048
     Dates: start: 20110523
  3. BENEFIBER FIBER SUPPLEMENT [Concomitant]
     Dosage: UNK
     Dates: start: 20150210

REACTIONS (2)
  - Drug dose omission [Unknown]
  - Diarrhoea [Unknown]
